FAERS Safety Report 9540624 (Version 1)
Quarter: 2013Q3

REPORT INFORMATION
  Report Type: Spontaneous
  Country: US (occurrence: US)
  Receive Date: 20130920
  Receipt Date: 20130920
  Transmission Date: 20140515
  Serious: Yes (Other)
  Sender: FDA-Public Use
  Company Number: ALCN2013US004689

PATIENT
  Age: 94 Year
  Sex: Male

DRUGS (3)
  1. LATANOPROST [Suspect]
     Dosage: 1 GTT, QD
     Route: 047
  2. TIMOLOL GFS [Suspect]
     Dosage: 1 GTT, QD
     Route: 047
  3. BRIMONIDINE [Concomitant]
     Dosage: 1 GTT, BID
     Route: 047

REACTIONS (1)
  - Cardiac failure congestive [Not Recovered/Not Resolved]
